FAERS Safety Report 5587837-0 (Version None)
Quarter: 2007Q4

REPORT INFORMATION
  Report Type: 
  Country: None (occurrence: None)
  Receive Date: 20071211
  Receipt Date: 20070823
  Transmission Date: 20080405
  Serious: No
  Sender: FDA-Public Use
  Company Number: 002#2#2007-00178

PATIENT
  Sex: Male

DRUGS (5)
  1. NEUPRO [Suspect]
     Indication: DRUG USE FOR UNKNOWN INDICATION
     Dosage: 4MG/24H,1 IN 1 D,TRANSDERMAL ; TRANSDERMAL
     Route: 062
     Dates: start: 20070801
  2. NEUPRO [Suspect]
     Indication: DRUG USE FOR UNKNOWN INDICATION
     Dosage: 4MG/24H,1 IN 1 D,TRANSDERMAL ; TRANSDERMAL
     Route: 062
     Dates: start: 20070801
  3. STALEVO [Concomitant]
  4. RELPAX [Concomitant]
  5. TOPAMAX [Concomitant]

REACTIONS (3)
  - CONSTIPATION [None]
  - HEADACHE [None]
  - HYPERHIDROSIS [None]
